FAERS Safety Report 26174660 (Version 1)
Quarter: 2025Q4

REPORT INFORMATION
  Report Type: Spontaneous
  Country: US (occurrence: None)
  Receive Date: 20251217
  Receipt Date: 20251217
  Transmission Date: 20260117
  Serious: Yes (Other)
  Sender: FDA-CTU
  Company Number: None

PATIENT
  Age: 50 Year
  Sex: Female
  Weight: 74.25 kg

DRUGS (1)
  1. SEMAGLUTIDE [Suspect]
     Active Substance: SEMAGLUTIDE
     Indication: Overweight
     Dosage: OTHER FREQUENCY : WEEKLY;
     Route: 058
     Dates: start: 20250715, end: 20251117

REACTIONS (5)
  - Dyspepsia [None]
  - Nausea [None]
  - Vomiting [None]
  - Therapy change [None]
  - Syncope [None]

NARRATIVE: CASE EVENT DATE: 20251117
